FAERS Safety Report 20935282 (Version 1)
Quarter: 2022Q2

REPORT INFORMATION
  Report Type: Spontaneous
  Country: CA (occurrence: CA)
  Receive Date: 20220609
  Receipt Date: 20220609
  Transmission Date: 20220721
  Serious: Yes (Hospitalization, Other)
  Sender: FDA-Public Use
  Company Number: CA-SUN PHARMACEUTICAL INDUSTRIES LTD-2022R1-339628

PATIENT
  Weight: 2.54 kg

DRUGS (1)
  1. CALCITRIOL [Suspect]
     Active Substance: CALCITRIOL
     Indication: Hypocalcaemia
     Dosage: DOUBLING
     Route: 064

REACTIONS (3)
  - Hypocalcaemia [Unknown]
  - Foetal exposure during pregnancy [Unknown]
  - Premature baby [Unknown]
